FAERS Safety Report 9927827 (Version 1)
Quarter: 2014Q1

REPORT INFORMATION
  Report Type: Spontaneous
  Country: HR (occurrence: HR)
  Receive Date: 20140227
  Receipt Date: 20140227
  Transmission Date: 20141002
  Serious: Yes (Death)
  Sender: FDA-Public Use
  Company Number: HR-ASTRAZENECA-2014SE12857

PATIENT
  Age: 51 Year
  Sex: Female

DRUGS (9)
  1. SYMBICORT TURBUHALER (BUDESONIDE, FORMOTEROLE) [Suspect]
     Indication: ASTHMA
     Dosage: 1 DF= 320MCG BUDESONIDE + 9 MCG FORMOTEROL, TWO DOSAGE FORM TWO TIMES DAILY
     Route: 055
     Dates: start: 201302, end: 20130826
  2. SYMBICORT TURBUHALER (BUDESONIDE, FORMOTEROLE) [Suspect]
     Indication: CHRONIC OBSTRUCTIVE PULMONARY DISEASE
     Dosage: 1 DF= 320MCG BUDESONIDE + 9 MCG FORMOTEROL, TWO DOSAGE FORM TWO TIMES DAILY
     Route: 055
     Dates: start: 201302, end: 20130826
  3. MELARTH (MONTELUCAST) [Suspect]
     Indication: ASTHMA
     Route: 048
     Dates: start: 201209, end: 20130826
  4. MELARTH (MONTELUCAST) [Suspect]
     Indication: CHRONIC OBSTRUCTIVE PULMONARY DISEASE
     Route: 048
     Dates: start: 201209, end: 20130826
  5. VENTOLIN (SALBUTAMOL) [Suspect]
     Indication: ASTHMA
     Dosage: AS REQUIRED
     Route: 055
     Dates: start: 201302, end: 20130826
  6. VENTOLIN (SALBUTAMOL) [Suspect]
     Indication: CHRONIC OBSTRUCTIVE PULMONARY DISEASE
     Dosage: AS REQUIRED
     Route: 055
     Dates: start: 201302, end: 20130826
  7. FLAVAMED (AMBROXOL) [Suspect]
     Indication: ASTHMA
     Route: 048
     Dates: end: 20130826
  8. FLAVAMED (AMBROXOL) [Suspect]
     Indication: CHRONIC OBSTRUCTIVE PULMONARY DISEASE
     Route: 048
     Dates: end: 20130826
  9. ATROVENT N (IPRATROPIUM) [Suspect]
     Indication: ASTHMA
     Route: 055
     Dates: start: 201307, end: 20130826

REACTIONS (1)
  - Death [Fatal]
